FAERS Safety Report 8320633 (Version 2)
Quarter: 2013Q3

REPORT INFORMATION
  Report Type: Spontaneous
  Country: CO (occurrence: CO)
  Receive Date: 20120104
  Receipt Date: 20130925
  Transmission Date: 20140515
  Serious: Yes (Other)
  Sender: FDA-Public Use
  Company Number: CO-PFIZER INC-2012001267

PATIENT
  Age: 73 Year
  Sex: Male

DRUGS (2)
  1. CARDURAN [Suspect]
     Indication: PROSTATIC DISORDER
     Dosage: 2 MG, DAILY
     Route: 048
     Dates: start: 1983
  2. CETIRIZINE [Concomitant]
     Indication: HYPERSENSITIVITY
     Dosage: 10 MG, ALTERNATE DAY
     Route: 048

REACTIONS (3)
  - Hearing impaired [Not Recovered/Not Resolved]
  - Hypertension [Not Recovered/Not Resolved]
  - Drug ineffective [Not Recovered/Not Resolved]
